FAERS Safety Report 8490480-7 (Version None)
Quarter: 2012Q3

REPORT INFORMATION
  Report Type: 
  Country: None (occurrence: None)
  Receive Date: 20120705
  Receipt Date: 20120625
  Transmission Date: 20120928
  Serious: Yes (Hospitalization, Other)
  Sender: FDA-Public Use
  Company Number: US-CELGENEUS-163-21880-12052545

PATIENT
  Sex: Female

DRUGS (26)
  1. OXYCONTIN [Concomitant]
     Route: 065
  2. RECLAST [Concomitant]
     Route: 065
  3. REVLIMID [Suspect]
     Dosage: 5 MILLIGRAM
     Route: 048
     Dates: start: 20120101
  4. VITAMIN B-12 [Concomitant]
     Route: 050
  5. PREVNAR VACCINATION [Concomitant]
     Route: 065
  6. VITAMIN D [Concomitant]
     Dosage: 5000 UNITS
     Route: 065
  7. EVOXAC [Concomitant]
     Dosage: 30 MILLIGRAM
     Route: 065
  8. OXYCODONE HCL [Concomitant]
     Dosage: 10 MILLIGRAM
     Route: 065
  9. ASCORBIC ACID [Concomitant]
     Route: 065
  10. PREVACID [Concomitant]
     Dosage: 10 MILLIGRAM
     Route: 065
  11. RANITIDINE [Concomitant]
     Dosage: 300 MILLIGRAM
     Route: 065
  12. FUROSEMIDE [Concomitant]
     Dosage: 40 MILLIGRAM
     Route: 065
  13. ACETAMINOPHEN [Concomitant]
     Route: 065
  14. LYRICA [Concomitant]
     Dosage: 100 MILLIGRAM
     Route: 065
  15. CELEBREX [Concomitant]
     Dosage: 200 MILLIGRAM
     Route: 065
  16. MIRALAX [Concomitant]
     Dosage: 17 GRAM
     Route: 065
  17. ASPIRIN [Concomitant]
     Dosage: 81 MILLIGRAM
     Route: 065
  18. REVLIMID [Suspect]
     Indication: MULTIPLE MYELOMA
     Dosage: 5 MILLIGRAM
     Route: 048
     Dates: start: 20100501, end: 20120430
  19. METFORMIN HCL [Concomitant]
     Dosage: 500 MILLIGRAM
     Route: 065
  20. CHROMIUM PICOLINATE [Concomitant]
     Route: 065
  21. CYMBALTA [Concomitant]
     Dosage: 60 MILLIGRAM
     Route: 065
  22. LIPITOR [Concomitant]
     Dosage: 40 MILLIGRAM
     Route: 065
  23. LASIX [Concomitant]
     Route: 065
  24. FIORICET [Concomitant]
     Route: 065
  25. MULTI-VITAMINS [Concomitant]
     Route: 065
  26. GAVISCON [Concomitant]
     Route: 065

REACTIONS (2)
  - CONVULSION [None]
  - PANCYTOPENIA [None]
